FAERS Safety Report 9498749 (Version 4)
Quarter: 2013Q3

REPORT INFORMATION
  Report Type: Report from Study
  Country: US (occurrence: US)
  Receive Date: 20130904
  Receipt Date: 20130925
  Transmission Date: 20140515
  Serious: Yes (Death, Hospitalization, Other)
  Sender: FDA-Public Use
  Company Number: US-TEVA-430211USA

PATIENT
  Age: 64 Year
  Sex: Male
  Weight: 91.5 kg

DRUGS (2)
  1. DAUNORUBICIN [Suspect]
     Dosage: 128 MG X 3 DAYS 60 MG/M2
     Route: 042
     Dates: start: 20130806, end: 20130808
  2. CYTARABINE [Suspect]
     Dosage: 213 MG X 7 DAYS 100 MG/M2
     Route: 042
     Dates: start: 20130806, end: 20130812

REACTIONS (18)
  - Sudden death [Fatal]
  - Ventricular fibrillation [Fatal]
  - Lung infection [Unknown]
  - Respiratory failure [Unknown]
  - Sepsis [Unknown]
  - White blood cell count decreased [Unknown]
  - Neutrophil count decreased [Unknown]
  - Platelet count decreased [Unknown]
  - Ventricular tachycardia [Unknown]
  - Hyponatraemia [Unknown]
  - Blood creatinine increased [Unknown]
  - Blood bilirubin increased [Unknown]
  - Anaemia [Unknown]
  - Hypotension [Unknown]
  - Hiccups [Unknown]
  - Renal failure acute [Unknown]
  - Atrial fibrillation [Unknown]
  - Febrile neutropenia [Unknown]
